FAERS Safety Report 5843517-5 (Version None)
Quarter: 2008Q3

REPORT INFORMATION
  Report Type: 
  Country: None (occurrence: None)
  Receive Date: 20080813
  Receipt Date: 20080812
  Transmission Date: 20090109
  Serious: Yes (Hospitalization, Other)
  Sender: FDA-Public Use
  Company Number: KR-ABBOTT-08P-090-0461870-00

PATIENT
  Age: 62 Year
  Sex: Male
  Weight: 60 kg

DRUGS (8)
  1. HUMIRA [Suspect]
     Indication: RHEUMATOID ARTHRITIS
     Route: 058
     Dates: start: 20070726, end: 20080703
  2. LEFLUNOMIDE [Concomitant]
     Indication: RHEUMATOID ARTHRITIS
     Route: 048
  3. MICRONIZED DEFLAZACORT [Concomitant]
     Indication: PAIN
     Route: 048
  4. MICRONIZED DEFLAZACORT [Concomitant]
     Indication: INFLAMMATION
  5. MICRONIZED DEFLAZACORT [Concomitant]
     Indication: RHEUMATOID ARTHRITIS
  6. CELECOXIB [Concomitant]
     Indication: PAIN
     Route: 048
  7. CELECOXIB [Concomitant]
     Indication: INFLAMMATION
  8. CELECOXIB [Concomitant]
     Indication: RHEUMATOID ARTHRITIS

REACTIONS (9)
  - ANAEMIA [None]
  - BACK PAIN [None]
  - COLON CANCER [None]
  - CONSTIPATION [None]
  - GENERAL PHYSICAL CONDITION ABNORMAL [None]
  - METASTASES TO SPINE [None]
  - RECTAL HAEMORRHAGE [None]
  - RENAL DISORDER [None]
  - THORACIC VERTEBRAL FRACTURE [None]
